FAERS Safety Report 6194598-3 (Version None)
Quarter: 2009Q2

REPORT INFORMATION
  Report Type: 
  Country: None (occurrence: None)
  Receive Date: 20090515
  Receipt Date: 20090427
  Transmission Date: 20091009
  Serious: Yes (Hospitalization)
  Sender: FDA-Public Use
  Company Number: B0573232A

PATIENT
  Sex: 0

DRUGS (4)
  1. FLUTICASONE PROPIONATE [Suspect]
     Indication: ASTHMA
     Dosage: 500 MCG / TWICE PER DAY / INHALED
     Route: 055
  2. ATAZANAVIR SULFATE [Suspect]
     Indication: HIV INFECTION
     Dosage: 300 MG / PER DAY
  3. RITONAVIR [Concomitant]
  4. COMBIVIR [Concomitant]

REACTIONS (10)
  - ADRENAL INSUFFICIENCY [None]
  - BLOOD THYROID STIMULATING HORMONE DECREASED [None]
  - CUSHING'S SYNDROME [None]
  - DIABETES MELLITUS [None]
  - HYPERCORTICOIDISM [None]
  - HYPERKALAEMIA [None]
  - HYPOGLYCAEMIA [None]
  - IATROGENIC INJURY [None]
  - THYROXINE DECREASED [None]
  - TRI-IODOTHYRONINE FREE DECREASED [None]
